FAERS Safety Report 9613559 (Version 1)
Quarter: 2013Q4

REPORT INFORMATION
  Report Type: Spontaneous
  Country: GB (occurrence: None)
  Receive Date: 20131008
  Receipt Date: 20131008
  Transmission Date: 20140711
  Serious: Yes (Other)
  Sender: FDA-Public Use
  Company Number: AUR-APL-2013-08226

PATIENT
  Sex: 0

DRUGS (4)
  1. METOPROLOL [Suspect]
     Indication: ATRIAL FIBRILLATION
     Dosage: 50 MG, 1 D), ORAL
     Route: 048
     Dates: start: 20130318
  2. PRADAXA [Suspect]
     Indication: PRODUCT USED FOR UNKNOWN INDICATION
  3. CETRABEN [Suspect]
     Indication: DRY SKIN
     Route: 061
  4. SOTALOL [Concomitant]

REACTIONS (4)
  - Atrial fibrillation [None]
  - Dyspepsia [None]
  - Dizziness [None]
  - Balance disorder [None]
